FAERS Safety Report 6881399-3 (Version None)
Quarter: 2010Q3

REPORT INFORMATION
  Report Type: 
  Country: None (occurrence: None)
  Receive Date: 20100728
  Receipt Date: 20090612
  Transmission Date: 20110219
  Serious: No
  Sender: FDA-Public Use
  Company Number: US-MYLANLABS-2009S1010680

PATIENT
  Age: 60 Year
  Sex: Female

DRUGS (5)
  1. TRAMADOL HYDROCHLORIDE [Suspect]
     Indication: PAIN
     Route: 048
  2. MILNACIPRAN HYDROCHLORIDE [Suspect]
     Indication: FIBROMYALGIA
     Route: 048
     Dates: start: 20090501, end: 20090501
  3. MILNACIPRAN HYDROCHLORIDE [Suspect]
     Route: 048
     Dates: start: 20090501, end: 20090501
  4. MILNACIPRAN HYDROCHLORIDE [Suspect]
     Route: 048
     Dates: start: 20090501, end: 20090607
  5. MILNACIPRAN HYDROCHLORIDE [Suspect]
     Route: 048
     Dates: start: 20090608

REACTIONS (3)
  - DRUG INTERACTION [None]
  - HOT FLUSH [None]
  - INSOMNIA [None]
